FAERS Safety Report 5664673-8 (Version None)
Quarter: 2008Q1

REPORT INFORMATION
  Report Type: 
  Country: None (occurrence: None)
  Receive Date: 20080314
  Receipt Date: 20080307
  Transmission Date: 20080703
  Serious: Yes (Hospitalization)
  Sender: FDA-Public Use
  Company Number: GB-ROCHE-551896

PATIENT
  Age: 57 Year
  Sex: Female
  Weight: 68.9 kg

DRUGS (2)
  1. ORLISTAT [Suspect]
     Indication: OBESITY
     Route: 048
     Dates: start: 20070828, end: 20080212
  2. ORLISTAT [Suspect]
     Route: 048
     Dates: end: 20080214

REACTIONS (2)
  - INFECTION [None]
  - LYMPHADENECTOMY [None]
